FAERS Safety Report 25680666 (Version 3)
Quarter: 2025Q3

REPORT INFORMATION
  Report Type: Spontaneous
  Country: US (occurrence: US)
  Receive Date: 20250814
  Receipt Date: 20250926
  Transmission Date: 20251021
  Serious: Yes (Hospitalization)
  Sender: CSL BEHRING
  Company Number: US-BEH-2025215502

PATIENT
  Age: 63 Year
  Sex: Male

DRUGS (6)
  1. RIASTAP [Suspect]
     Active Substance: FIBRINOGEN HUMAN
     Indication: Coagulation factor deficiency
     Dosage: 5430 MG, TIW
     Route: 042
     Dates: start: 202501
  2. RIASTAP [Suspect]
     Active Substance: FIBRINOGEN HUMAN
     Route: 065
     Dates: start: 20250801
  3. RIASTAP [Suspect]
     Active Substance: FIBRINOGEN HUMAN
     Dosage: 5430 IU, TIW
     Route: 042
     Dates: start: 202501
  4. HEPARIN [Concomitant]
     Active Substance: HEPARIN SODIUM
  5. SODIUM CHLORIDE [Concomitant]
     Active Substance: SODIUM CHLORIDE
  6. STERILE WATER [Concomitant]
     Active Substance: WATER

REACTIONS (4)
  - Staphylococcal infection [Unknown]
  - Device related infection [Unknown]
  - Staphylococcus test positive [Unknown]
  - Infection [Unknown]

NARRATIVE: CASE EVENT DATE: 20250729
